FAERS Safety Report 16517842 (Version 1)
Quarter: 2019Q3

REPORT INFORMATION
  Report Type: Spontaneous
  Country: US (occurrence: US)
  Receive Date: 20190702
  Receipt Date: 20190702
  Transmission Date: 20191004
  Serious: Yes (Hospitalization)
  Sender: FDA-Public Use
  Company Number: None

PATIENT
  Age: 84 Year
  Sex: Male

DRUGS (17)
  1. RAMIPRIL. [Concomitant]
     Active Substance: RAMIPRIL
  2. ATORVASTATIN [Concomitant]
     Active Substance: ATORVASTATIN
  3. CLONIDINE. [Concomitant]
     Active Substance: CLONIDINE
  4. TRELEGY ELLIPTA [Concomitant]
     Active Substance: FLUTICASONE FUROATE\UMECLIDINIUM BROMIDE\VILANTEROL TRIFENATATE
  5. NOVOLOG [Concomitant]
     Active Substance: INSULIN ASPART
  6. BASAGLAR [Concomitant]
     Active Substance: INSULIN GLARGINE
  7. SUTENT [Suspect]
     Active Substance: SUNITINIB MALATE
     Indication: RENAL CANCER
     Dosage: ?          OTHER FREQUENCY:DAYS1-28,OFF14DAYS;?
     Route: 048
     Dates: start: 20190606
  8. ODANSETRON [Concomitant]
     Active Substance: ONDANSETRON
  9. LATANOPROST. [Concomitant]
     Active Substance: LATANOPROST
  10. TRAMADOL. [Concomitant]
     Active Substance: TRAMADOL
  11. NITROSTAT [Concomitant]
     Active Substance: NITROGLYCERIN
  12. METOPROLOL. [Concomitant]
     Active Substance: METOPROLOL
  13. METOLAZONE. [Concomitant]
     Active Substance: METOLAZONE
  14. HYDRALAZINE [Concomitant]
     Active Substance: HYDRALAZINE HYDROCHLORIDE
  15. GABAPENTIN. [Concomitant]
     Active Substance: GABAPENTIN
  16. LASIX [Concomitant]
     Active Substance: FUROSEMIDE
  17. NORVASC [Concomitant]
     Active Substance: AMLODIPINE BESYLATE

REACTIONS (1)
  - Dehydration [None]

NARRATIVE: CASE EVENT DATE: 20190625
